FAERS Safety Report 23409341 (Version 1)
Quarter: 2024Q1

REPORT INFORMATION
  Report Type: Spontaneous
  Country: JP (occurrence: JP)
  Receive Date: 20240117
  Receipt Date: 20240117
  Transmission Date: 20240409
  Serious: Yes (Life-Threatening, Hospitalization, Other)
  Sender: FDA-Public Use
  Company Number: JP-PFIZER INC-PV202400004135

PATIENT
  Age: 88 Year
  Sex: Male

DRUGS (1)
  1. HYDROCORTISONE [Suspect]
     Active Substance: HYDROCORTISONE
     Indication: Adrenocorticotropic hormone deficiency
     Dosage: 20 MG, DAILY

REACTIONS (2)
  - Pseudoaldosteronism [Recovering/Resolving]
  - Rhabdomyolysis [Unknown]
